FAERS Safety Report 12592258 (Version 2)
Quarter: 2017Q2

REPORT INFORMATION
  Report Type: Spontaneous
  Country: US (occurrence: US)
  Receive Date: 20160726
  Receipt Date: 20170510
  Transmission Date: 20170830
  Serious: Yes (Other)
  Sender: FDA-Public Use
  Company Number: GXBR2016US002316

PATIENT
  Sex: Female

DRUGS (1)
  1. GLATOPA [Suspect]
     Active Substance: GLATIRAMER ACETATE
     Indication: PRODUCT USED FOR UNKNOWN INDICATION
     Dosage: 20 MG/ML, UNK
     Route: 065

REACTIONS (10)
  - Injection site mass [Unknown]
  - Hyperaesthesia [Unknown]
  - Paraesthesia [Unknown]
  - Injection site reaction [Unknown]
  - Feeling hot [Unknown]
  - Central nervous system lesion [Unknown]
  - Chest pain [Unknown]
  - Pruritus [Unknown]
  - Chest discomfort [Unknown]
  - Hypoaesthesia [Unknown]
